FAERS Safety Report 23269299 (Version 1)
Quarter: 2023Q4

REPORT INFORMATION
  Report Type: Spontaneous
  Country: US (occurrence: US)
  Receive Date: 20231207
  Receipt Date: 20231207
  Transmission Date: 20240109
  Serious: No
  Sender: FDA-Public Use
  Company Number: US-SANDOZ-SDZ2023US062588

PATIENT
  Sex: Female

DRUGS (5)
  1. ORENITRAM [Suspect]
     Active Substance: TREPROSTINIL
     Indication: Product used for unknown indication
     Dosage: UNK
     Route: 048
  2. TREPROSTINIL [Suspect]
     Active Substance: TREPROSTINIL
     Indication: Pulmonary arterial hypertension
     Dosage: 11 MG,(1 TABLET OF 1 MG AND 2 TABLETS OF 5 MG
     Route: 065
     Dates: start: 202207
  3. ZOFRAN [Suspect]
     Active Substance: ONDANSETRON HYDROCHLORIDE
     Indication: Abdominal pain upper
     Route: 065
  4. AMBRISENTAN [Concomitant]
     Active Substance: AMBRISENTAN
     Indication: Product used for unknown indication
     Route: 065
  5. AMBRISENTAN [Concomitant]
     Active Substance: AMBRISENTAN
     Indication: Product used for unknown indication
     Route: 065

REACTIONS (6)
  - Decreased appetite [Unknown]
  - Abdominal pain upper [Unknown]
  - Nausea [Unknown]
  - Abdominal distension [Unknown]
  - Therapy partial responder [Unknown]
  - Intentional dose omission [Unknown]
